FAERS Safety Report 23791401 (Version 1)
Quarter: 2024Q2

REPORT INFORMATION
  Report Type: Report from Study
  Country: ES (occurrence: None)
  Receive Date: 20240429
  Receipt Date: 20240429
  Transmission Date: 20240716
  Serious: Yes (Other)
  Sender: FDA-Public Use
  Company Number: ES-Encube-000694

PATIENT
  Age: 57 Year
  Sex: Male

DRUGS (1)
  1. GENTAMICIN SULFATE [Suspect]
     Active Substance: GENTAMICIN SULFATE
     Indication: Otitis media chronic
     Dosage: EAR DROPS, FOR 10 DAYS

REACTIONS (5)
  - Off label use [Unknown]
  - Gait disturbance [Recovering/Resolving]
  - Oculocephalogyric reflex absent [Recovering/Resolving]
  - Ototoxicity [Recovering/Resolving]
  - Deafness neurosensory [Recovering/Resolving]
